FAERS Safety Report 4961405-3 (Version None)
Quarter: 2006Q2

REPORT INFORMATION
  Report Type: 
  Country: None (occurrence: None)
  Receive Date: 20060403
  Receipt Date: 20060324
  Transmission Date: 20061013
  Serious: Yes (Hospitalization, Disabling)
  Sender: FDA-Public Use
  Company Number: US-MERCK-0603USA04293

PATIENT
  Age: 45 Year
  Sex: Male
  Weight: 86 kg

DRUGS (5)
  1. VIOXX [Suspect]
     Indication: PAIN IN EXTREMITY
     Route: 048
     Dates: start: 20021001, end: 20040701
  2. VIOXX [Suspect]
     Route: 048
     Dates: start: 20021001, end: 20040701
  3. VIOXX [Suspect]
     Indication: INFLAMMATION
     Route: 048
     Dates: start: 20021001, end: 20040701
  4. VIOXX [Suspect]
     Route: 048
     Dates: start: 20021001, end: 20040701
  5. IBUPROFEN [Concomitant]
     Route: 065

REACTIONS (3)
  - ARTHRALGIA [None]
  - ARTHROPATHY [None]
  - MYOCARDIAL INFARCTION [None]
